FAERS Safety Report 10348113 (Version 2)
Quarter: 2014Q3

REPORT INFORMATION
  Report Type: Spontaneous
  Country: FR (occurrence: FR)
  Receive Date: 20140729
  Receipt Date: 20140731
  Transmission Date: 20150326
  Serious: Yes (Other)
  Sender: FDA-Public Use
  Company Number: PHHY2014FR090633

PATIENT
  Age: 44 Year
  Sex: Male

DRUGS (10)
  1. CYAMEMAZINE [Suspect]
     Active Substance: CYAMEMAZINE
     Dosage: 75 MG, PER DAY
  2. QUETIAPINE [Suspect]
     Active Substance: QUETIAPINE
     Indication: MENTAL DISORDER
     Dosage: 150 MG, PER DAY
  3. QUETIAPINE [Suspect]
     Active Substance: QUETIAPINE
     Dosage: 600 MG, PER DAY
  4. CYAMEMAZINE [Suspect]
     Active Substance: CYAMEMAZINE
     Dosage: 450 MG, PER DAY
  5. DIAZEPAM. [Concomitant]
     Active Substance: DIAZEPAM
     Dosage: 30 MG, UNK
  6. CYAMEMAZINE [Suspect]
     Active Substance: CYAMEMAZINE
     Dosage: 200 MG, PER DAY
  7. TROPATEPINE [Suspect]
     Active Substance: TROPATEPINE
     Indication: MUSCLE CONTRACTURE
     Dosage: 30 MG, PER DAY
  8. ALPRAZOLAM. [Concomitant]
     Active Substance: ALPRAZOLAM
     Dosage: 0.75 MG, UNK
  9. QUETIAPINE [Suspect]
     Active Substance: QUETIAPINE
     Dosage: 300 MG, PER DAY
  10. ESTAZOLAM. [Concomitant]
     Active Substance: ESTAZOLAM
     Dosage: 2 MG, PER DAY

REACTIONS (14)
  - Pyrexia [Recovered/Resolved]
  - Intestinal ischaemia [Recovered/Resolved]
  - Septic shock [Recovered/Resolved]
  - Flatulence [Recovered/Resolved]
  - Abdominal distension [Recovered/Resolved]
  - Asthenia [Recovered/Resolved]
  - Hypovolaemic shock [Recovered/Resolved]
  - Necrotising colitis [Recovered/Resolved]
  - Vomiting [Recovered/Resolved]
  - Hypotension [Recovered/Resolved]
  - Abdominal tenderness [Recovered/Resolved]
  - Abdominal pain [Recovered/Resolved]
  - Pallor [Recovered/Resolved]
  - Bacteraemia [Recovered/Resolved]
